FAERS Safety Report 5902000-9 (Version None)
Quarter: 2008Q3

REPORT INFORMATION
  Report Type: 
  Country: None (occurrence: None)
  Receive Date: 20080909
  Receipt Date: 20080512
  Transmission Date: 20090109
  Serious: Yes (Other)
  Sender: FDA-Public Use
  Company Number: US-WYE-H04079508

PATIENT
  Age: 69 Year
  Sex: Female
  Weight: 61.29 kg

DRUGS (6)
  1. ADVIL [Suspect]
     Indication: HEADACHE
     Dosage: 2 CAPSULES, 1 TIME, ORAL
     Route: 048
     Dates: start: 20080509, end: 20080509
  2. XANAX [Concomitant]
  3. ACIPHEX [Concomitant]
  4. ALLEGRA [Concomitant]
  5. ESTRADIOL [Concomitant]
  6. CRESTOR [Concomitant]

REACTIONS (4)
  - DISORIENTATION [None]
  - DRUG INEFFECTIVE [None]
  - GASTROINTESTINAL DISORDER [None]
  - NAUSEA [None]
